FAERS Safety Report 5290602-5 (Version None)
Quarter: 2007Q2

REPORT INFORMATION
  Report Type: 
  Country: None (occurrence: None)
  Receive Date: 20070405
  Receipt Date: 20070405
  Transmission Date: 20071010
  Serious: Yes (Hospitalization)
  Sender: FDA-Public Use
  Company Number: None

PATIENT
  Age: 22 Year
  Sex: Female

DRUGS (1)
  1. CYPROHEPTADINE HCL [Suspect]
     Indication: SUICIDE ATTEMPT
     Dosage: 60 X 4 MG PO OTO
     Route: 048

REACTIONS (4)
  - BLOOD PRESSURE DIASTOLIC DECREASED [None]
  - HEART RATE INCREASED [None]
  - LETHARGY [None]
  - SUICIDE ATTEMPT [None]
